FAERS Safety Report 8496523-9 (Version None)
Quarter: 2012Q3

REPORT INFORMATION
  Report Type: 
  Country: None (occurrence: None)
  Receive Date: 20120709
  Receipt Date: 20120625
  Transmission Date: 20120928
  Serious: Yes (Other)
  Sender: FDA-Public Use
  Company Number: DE-UCBSA-056390

PATIENT
  Sex: Male

DRUGS (1)
  1. VIMPAT [Suspect]
     Dosage: 400 MG SINGLE ADMINISTRATION
     Route: 042

REACTIONS (1)
  - ATRIOVENTRICULAR BLOCK [None]
